FAERS Safety Report 6242465-9 (Version None)
Quarter: 2009Q2

REPORT INFORMATION
  Report Type: 
  Country: None (occurrence: None)
  Receive Date: 20090622
  Receipt Date: 20090622
  Transmission Date: 20091009
  Serious: No
  Sender: FDA-Public Use
  Company Number: None

PATIENT
  Age: 71 Year
  Sex: Male
  Weight: 89.8122 kg

DRUGS (1)
  1. ZICAM .50 FL. OZ. ZICAM NASAL GEL ZICAM [Suspect]
     Indication: NASOPHARYNGITIS
     Dosage: @ 6 BOTTLES OVER 2 YEARS ; OVER TWO YEARS
     Dates: start: 20070310, end: 20090518

REACTIONS (2)
  - DYSGEUSIA [None]
  - HYPOSMIA [None]
